FAERS Safety Report 5272960-0 (Version None)
Quarter: 2007Q1

REPORT INFORMATION
  Report Type: 
  Country: None (occurrence: None)
  Receive Date: 20061214
  Receipt Date: 20060818
  Transmission Date: 20070707
  Serious: Yes (Hospitalization, Other)
  Sender: FDA-Public Use
  Company Number: 2006104867

PATIENT
  Age: 60 Year
  Sex: Male
  Weight: 97.977 kg

DRUGS (1)
  1. BEXTRA [Suspect]
     Indication: PAIN
     Dosage: 20 MG (20 MG, FREQUENCY: QD, INTERVAL:DAILY)
     Dates: start: 20041022, end: 20050319

REACTIONS (2)
  - ACUTE MYOCARDIAL INFARCTION [None]
  - ANXIETY [None]
